FAERS Safety Report 5736939-4 (Version None)
Quarter: 2008Q2

REPORT INFORMATION
  Report Type: 
  Country: None (occurrence: None)
  Receive Date: 20080509
  Receipt Date: 20080429
  Transmission Date: 20081010
  Serious: Yes (Death)
  Sender: FDA-Public Use
  Company Number: GXKR2008CH04073

PATIENT
  Age: 1 Day
  Sex: Male
  Weight: 4.1 kg

DRUGS (5)
  1. ECOFENAC (NGX)(DICLOFENAC) UNKNOWN [Suspect]
     Dosage: TRANSPLACENTAL
     Route: 064
  2. OTRIVIN [Suspect]
     Dosage: TRANSPLACENTAL
     Route: 064
  3. LANSOPRAZOLE [Concomitant]
  4. ELEVIT PRONATAL (ASCORBIC ACID, BIOTIN, CALCIUM, CALCIUM PANTOTHENATE, [Concomitant]
  5. ACETAMINOPHEN [Concomitant]

REACTIONS (6)
  - ABORTION INDUCED [None]
  - INFLAMMATION [None]
  - INTRA-UTERINE DEATH [None]
  - MATERNAL DRUGS AFFECTING FOETUS [None]
  - PLACENTAL DISORDER [None]
  - PLACENTAL INFARCTION [None]
